FAERS Safety Report 8558830-0 (Version None)
Quarter: 2012Q3

REPORT INFORMATION
  Report Type: 
  Country: None (occurrence: None)
  Receive Date: 20120801
  Receipt Date: 20120727
  Transmission Date: 20120928
  Serious: Yes (Other)
  Sender: FDA-Public Use
  Company Number: US-MSD-1207USA012070

PATIENT

DRUGS (2)
  1. FLUTICASONE PROPIONATE [Suspect]
     Dosage: 1 DF, UNK
  2. ASMANEX TWISTHALER [Suspect]
     Dosage: 1 DF, UNK

REACTIONS (4)
  - SKIN ULCER [None]
  - URTICARIA [None]
  - RASH [None]
  - VISION BLURRED [None]
